FAERS Safety Report 6993655-9 (Version None)
Quarter: 2010Q3

REPORT INFORMATION
  Report Type: 
  Country: None (occurrence: None)
  Receive Date: 20100917
  Receipt Date: 20100305
  Transmission Date: 20110219
  Serious: Yes (Other)
  Sender: FDA-Public Use
  Company Number: US-ASTRAZENECA-2007UW13902

PATIENT
  Age: 13993 Day
  Sex: Female
  Weight: 120.2 kg

DRUGS (22)
  1. SEROQUEL [Suspect]
     Indication: SLEEP DISORDER
     Route: 048
     Dates: start: 20010101, end: 20040707
  2. SEROQUEL [Suspect]
     Indication: BIPOLAR DISORDER
     Route: 048
     Dates: start: 20010101, end: 20040707
  3. SEROQUEL [Suspect]
     Indication: POST-TRAUMATIC STRESS DISORDER
     Route: 048
     Dates: start: 20010101, end: 20040707
  4. SEROQUEL [Suspect]
     Indication: DEPRESSION
     Route: 048
     Dates: start: 20010101, end: 20040707
  5. SEROQUEL [Suspect]
     Route: 048
     Dates: start: 20040819
  6. SEROQUEL [Suspect]
     Route: 048
     Dates: start: 20040819
  7. SEROQUEL [Suspect]
     Route: 048
     Dates: start: 20040819
  8. SEROQUEL [Suspect]
     Route: 048
     Dates: start: 20040819
  9. SEROQUEL [Suspect]
     Dosage: 25-500MG
     Route: 048
     Dates: start: 20010101, end: 20050901
  10. SEROQUEL [Suspect]
     Dosage: 25-500MG
     Route: 048
     Dates: start: 20010101, end: 20050901
  11. SEROQUEL [Suspect]
     Dosage: 25-500MG
     Route: 048
     Dates: start: 20010101, end: 20050901
  12. SEROQUEL [Suspect]
     Dosage: 25-500MG
     Route: 048
     Dates: start: 20010101, end: 20050901
  13. NEXIUM [Concomitant]
     Dates: start: 20070330
  14. CELEBREX [Concomitant]
     Route: 048
     Dates: start: 20031218
  15. WELLBUTRIN [Concomitant]
     Route: 048
     Dates: start: 20040101
  16. WELLBUTRIN [Concomitant]
     Dosage: 150-300MG
     Dates: start: 20041101
  17. TRILEPTAL [Concomitant]
     Route: 048
     Dates: start: 20040101
  18. SKELAXIN [Concomitant]
     Route: 048
     Dates: start: 20040819
  19. LAMICTAL [Concomitant]
     Route: 048
     Dates: start: 20040819
  20. FLEXERIL [Concomitant]
     Route: 048
     Dates: start: 20040820
  21. ABILIFY [Concomitant]
     Dosage: 10-15MG
     Dates: start: 20050701
  22. ZOLOFT [Concomitant]
     Dosage: 100-200MG
     Dates: start: 20060301

REACTIONS (1)
  - PANCREATITIS ACUTE [None]
